FAERS Safety Report 7859502-8 (Version None)
Quarter: 2011Q4

REPORT INFORMATION
  Report Type: 
  Country: None (occurrence: None)
  Receive Date: 20111027
  Receipt Date: 20111025
  Transmission Date: 20120403
  Serious: Yes (Other)
  Sender: FDA-Public Use
  Company Number: US-PFIZER INC-2011260118

PATIENT
  Sex: Female

DRUGS (1)
  1. IBUPROFEN (ADVIL) [Suspect]
     Dosage: TWO 200 MG, 1X/DAY
     Dates: start: 20111001

REACTIONS (3)
  - BOWEL MOVEMENT IRREGULARITY [None]
  - HAEMATOCHEZIA [None]
  - HEADACHE [None]
